FAERS Safety Report 9688895 (Version 1)
Quarter: 2013Q4

REPORT INFORMATION
  Report Type: Spontaneous
  Country: US (occurrence: None)
  Receive Date: 20131113
  Receipt Date: 20131113
  Transmission Date: 20140711
  Serious: Yes (Other)
  Sender: FDA-Public Use
  Company Number: 7173230

PATIENT
  Age: 56 Year
  Sex: Female
  Weight: 76 kg

DRUGS (1)
  1. LEVOTHYROXINE [Suspect]
     Dates: start: 200912

REACTIONS (10)
  - Cognitive disorder [None]
  - Depression [None]
  - Anxiety [None]
  - Temperature intolerance [None]
  - Constipation [None]
  - Dry skin [None]
  - Weight increased [None]
  - Thyroxine increased [None]
  - Blood thyroid stimulating hormone decreased [None]
  - Hyperthyroidism [None]
